FAERS Safety Report 9262524 (Version 2)
Quarter: 2013Q2

REPORT INFORMATION
  Report Type: Spontaneous
  Country: JP (occurrence: JP)
  Receive Date: 20130430
  Receipt Date: 20130610
  Transmission Date: 20140414
  Serious: Yes (Other)
  Sender: FDA-Public Use
  Company Number: JP-ROCHE-1218892

PATIENT
  Age: 67 Year
  Sex: Male

DRUGS (1)
  1. CELLCEPT [Suspect]
     Indication: PROPHYLAXIS AGAINST TRANSPLANT REJECTION
     Dosage: DOSAGE IS UNCERTAIN
     Route: 048

REACTIONS (3)
  - Gastroenteritis rotavirus [Unknown]
  - Herpes zoster [Unknown]
  - Histiocytosis haematophagic [Unknown]
